FAERS Safety Report 5286534-9 (Version None)
Quarter: 2007Q2

REPORT INFORMATION
  Report Type: 
  Country: None (occurrence: None)
  Receive Date: 20070404
  Receipt Date: 20070312
  Transmission Date: 20071010
  Serious: Yes (Other)
  Sender: FDA-Public Use
  Company Number: US-SANOFI-SYNTHELABO-A03200702326

PATIENT
  Sex: Female

DRUGS (6)
  1. NEURONTIN [Concomitant]
     Dosage: UNK
     Route: 065
  2. WELLBUTRIN XL [Concomitant]
  3. TRILEPTAL [Concomitant]
     Dosage: UNK
     Route: 065
  4. KEPPRA [Concomitant]
     Dosage: UNK
     Route: 065
  5. ABILIFY [Concomitant]
     Dosage: UNK
     Route: 065
  6. AMBIEN [Suspect]
     Indication: INSOMNIA
     Dosage: UNK
     Route: 048
     Dates: start: 20030101, end: 20050801

REACTIONS (5)
  - ABNORMAL BEHAVIOUR [None]
  - AMNESIA [None]
  - EATING DISORDER [None]
  - SLEEP WALKING [None]
  - WEIGHT INCREASED [None]
